FAERS Safety Report 12500090 (Version 1)
Quarter: 2016Q2

REPORT INFORMATION
  Report Type: Spontaneous
  Country: US (occurrence: None)
  Receive Date: 20160624
  Receipt Date: 20160624
  Transmission Date: 20160815
  Serious: No
  Sender: FDA-Public Use
  Company Number: None

PATIENT
  Age: 42 Year
  Sex: Female

DRUGS (3)
  1. FERROUS SULF [Concomitant]
  2. HARVONI [Suspect]
     Active Substance: LEDIPASVIR\SOFOSBUVIR
     Indication: HEPATITIS C
     Dosage: 90-400MG QD PO
     Route: 048
  3. ADVIL [Concomitant]
     Active Substance: IBUPROFEN

REACTIONS (2)
  - Muscle spasms [None]
  - Fatigue [None]

NARRATIVE: CASE EVENT DATE: 201606
